FAERS Safety Report 8297555-6 (Version None)
Quarter: 2012Q2

REPORT INFORMATION
  Report Type: 
  Country: None (occurrence: None)
  Receive Date: 20120417
  Receipt Date: 20120410
  Transmission Date: 20120825
  Serious: Yes (Death)
  Sender: FDA-Public Use
  Company Number: 2012SP019021

PATIENT
  Age: 50 Year
  Sex: Male

DRUGS (3)
  1. VIRAFERONPEG [Suspect]
     Indication: HEPATITIS C
     Dates: start: 20120101
  2. REBETOL [Suspect]
     Indication: HEPATITIS C
     Dates: start: 20120101
  3. VICTRELIS [Suspect]
     Indication: HEPATITIS C
     Dates: start: 20120101

REACTIONS (2)
  - SEPTIC SHOCK [None]
  - PROSTATIC DISORDER [None]
